FAERS Safety Report 8843125 (Version 3)
Quarter: 2012Q4

REPORT INFORMATION
  Report Type: 
  Country: JP (occurrence: JP)
  Receive Date: 20121016
  Receipt Date: 20121107
  Transmission Date: 20130627
  Serious: Yes (Hospitalization)
  Sender: FDA-Public Use
  Company Number: JP-009507513-1210JPN005733

PATIENT
  Age: 84 Year
  Sex: Female
  Weight: 56 kg

DRUGS (10)
  1. FOSAMAC TABLETS 35MG [Suspect]
     Indication: OSTEOPOROSIS
     Dosage: UNK UNK, qw
     Route: 048
     Dates: start: 20080213
  2. RISEDRONATE SODIUM [Suspect]
     Dosage: 2.5 mg, UNK
     Route: 048
  3. ALFACALCIDOL [Concomitant]
     Dosage: 0.5 Microgram, UNK
     Route: 048
  4. MAGNESIUM OXIDE [Concomitant]
     Dosage: 2 DF, bid
     Route: 065
  5. MEXITIL [Concomitant]
     Dosage: 1 DF, qd
     Route: 048
  6. PARIET [Concomitant]
     Route: 065
  7. LASIX (FUROSEMIDE) [Concomitant]
     Dosage: 0.5 DF, qd
     Route: 048
  8. ASPARA CA [Concomitant]
     Dosage: 3 DF, qd
     Route: 048
  9. BLOPRESS [Concomitant]
     Route: 065
  10. PURSENNID (SENNOSIDES) [Concomitant]
     Dosage: 1 DF, qd
     Route: 048

REACTIONS (1)
  - Atypical femur fracture [Recovered/Resolved]
